FAERS Safety Report 18876224 (Version 5)
Quarter: 2021Q2

REPORT INFORMATION
  Report Type: Report from Study
  Country: DE (occurrence: DE)
  Receive Date: 20210210
  Receipt Date: 20210427
  Transmission Date: 20210717
  Serious: Yes (Hospitalization)
  Sender: FDA-Public Use
  Company Number: DE-SEATTLE GENETICS-2021SGN00523

PATIENT
  Age: 52 Year
  Sex: Female
  Weight: 82 kg

DRUGS (15)
  1. L THYROXIN [Concomitant]
     Active Substance: LEVOTHYROXINE SODIUM
     Dosage: 150 ?G, BID
  2. LIXIANA [Concomitant]
     Active Substance: EDOXABAN TOSYLATE
     Dosage: 60 MG, QD
  3. AMLODIPINE [Concomitant]
     Active Substance: AMLODIPINE BESYLATE
     Dosage: 5 MG, QPM
  4. ZOPICLONE [Concomitant]
     Active Substance: ZOPICLONE
     Dosage: 7.5 MG
  5. NOVALGIN                           /00169801/ [Concomitant]
     Active Substance: ACETAMINOPHEN\CAFFEINE\PROPYPHENAZONE
     Dosage: 50 MG, AS NEEDED
  6. TILIDINE [Concomitant]
     Active Substance: TILIDINE
     Dosage: 4 MG, AS NEEDED
  7. TUCATINIB [Suspect]
     Active Substance: TUCATINIB
     Dosage: 150 MG, QD
     Route: 048
     Dates: start: 20210115, end: 20210205
  8. TUCATINIB [Suspect]
     Active Substance: TUCATINIB
     Indication: HER2 POSITIVE BREAST CANCER
     Dosage: 300 MG, BID
     Route: 048
  9. TRASTUZUMAB. [Suspect]
     Active Substance: TRASTUZUMAB
     Indication: HER2 POSITIVE BREAST CANCER
     Dosage: 600 MG, Q3WEEKS
     Route: 058
     Dates: start: 20210115, end: 20210226
  10. DENOSUMAB [Concomitant]
     Active Substance: DENOSUMAB
     Dosage: Q4WEEKS
     Route: 058
     Dates: start: 201901
  11. TORSEMIDE. [Concomitant]
     Active Substance: TORSEMIDE
     Dosage: 5 MG, QD
  12. BISOPROLOL [Concomitant]
     Active Substance: BISOPROLOL
     Dosage: 5 MG, BID
  13. CAPECITABINE. [Suspect]
     Active Substance: CAPECITABINE
     Indication: HER2 POSITIVE BREAST CANCER
     Dosage: 1000 MG/M2, BID
     Route: 048
     Dates: start: 20210115, end: 20210220
  14. PANTROZOLE [Concomitant]
     Dosage: 40 MG AS NEEDED
  15. VITAMIN B [Concomitant]
     Active Substance: VITAMIN B
     Dosage: 620 MG, QD

REACTIONS (2)
  - Infection [Recovered/Resolved]
  - Hepatotoxicity [Recovering/Resolving]

NARRATIVE: CASE EVENT DATE: 20210205
